FAERS Safety Report 7878688-2 (Version None)
Quarter: 2011Q4

REPORT INFORMATION
  Report Type: 
  Country: None (occurrence: None)
  Receive Date: 20111020
  Receipt Date: 20110711
  Transmission Date: 20120403
  Serious: Yes (Hospitalization)
  Sender: FDA-Public Use
  Company Number: 2011AL000054

PATIENT
  Age: 49 Year
  Sex: Male
  Weight: 95.2554 kg

DRUGS (2)
  1. FOLOTYN [Suspect]
     Indication: COLON CANCER METASTATIC
     Dosage: 273 MG;QOW;IV
     Route: 042
     Dates: start: 20110315, end: 20110606
  2. FLUOROURACIL [Suspect]
     Indication: COLON CANCER METASTATIC
     Dosage: 6930 MG;QOW
     Dates: start: 20110313, end: 20110608

REACTIONS (5)
  - FATIGUE [None]
  - ABDOMINAL PAIN [None]
  - DIARRHOEA [None]
  - NAUSEA [None]
  - DEHYDRATION [None]
